FAERS Safety Report 4530311-0 (Version None)
Quarter: 2004Q4

REPORT INFORMATION
  Report Type: 
  Country: None (occurrence: None)
  Receive Date: 20041217
  Receipt Date: 20041208
  Transmission Date: 20050328
  Serious: Yes (Life-Threatening)
  Sender: FDA-Public Use
  Company Number: FR-ROCHE-388567

PATIENT
  Age: 43 Year
  Sex: Female
  Weight: 47 kg

DRUGS (7)
  1. VALIUM [Suspect]
     Route: 048
     Dates: start: 20040903, end: 20040904
  2. HAVLANE [Suspect]
     Route: 048
     Dates: start: 20040903, end: 20040904
  3. HEPT-A-MYL [Concomitant]
  4. OMEPRAZOLE [Concomitant]
  5. THERALENE [Concomitant]
  6. HALDOL [Concomitant]
  7. PHENOBARBITAL TAB [Concomitant]

REACTIONS (2)
  - COMA [None]
  - HYPOTHERMIA [None]
